FAERS Safety Report 8126367-9 (Version None)
Quarter: 2012Q1

REPORT INFORMATION
  Report Type: 
  Country: None (occurrence: None)
  Receive Date: 20120209
  Receipt Date: 20120131
  Transmission Date: 20120608
  Serious: Yes (Other)
  Sender: FDA-Public Use
  Company Number: FR-ASTRAZENECA-2012SE07634

PATIENT
  Age: 77 Year
  Sex: Male

DRUGS (6)
  1. BETA BLOCKER [Concomitant]
  2. DIURETIC [Concomitant]
  3. VITAMIN K ANTAGONIST [Concomitant]
  4. CORDARONE [Concomitant]
  5. CRESTOR [Suspect]
     Route: 048
     Dates: start: 20110901, end: 20120109
  6. SARTAN [Concomitant]

REACTIONS (2)
  - GOUT [None]
  - RHABDOMYOLYSIS [None]
